FAERS Safety Report 6097275-2 (Version None)
Quarter: 2009Q1

REPORT INFORMATION
  Report Type: 
  Country: None (occurrence: None)
  Receive Date: 20090226
  Receipt Date: 20090226
  Transmission Date: 20090719
  Serious: Yes (Life-Threatening)
  Sender: FDA-Public Use
  Company Number: None

PATIENT
  Age: 13 Year
  Sex: Male
  Weight: 37 kg

DRUGS (1)
  1. INCRELEX [Suspect]
     Indication: CONVULSION
     Dosage: 1.3 MG; 14 U BID SQ
     Route: 058
     Dates: start: 20070428, end: 20070502

REACTIONS (7)
  - ANAPHYLACTIC REACTION [None]
  - DRUG DOSE OMISSION [None]
  - INJECTION SITE ERYTHEMA [None]
  - RESPIRATORY DISTRESS [None]
  - RHINORRHOEA [None]
  - SKIN TEST POSITIVE [None]
  - SNEEZING [None]
